FAERS Safety Report 5612694-3 (Version None)
Quarter: 2008Q1

REPORT INFORMATION
  Report Type: 
  Country: None (occurrence: None)
  Receive Date: 20080129
  Receipt Date: 20080109
  Transmission Date: 20080703
  Serious: Yes (Death)
  Sender: FDA-Public Use
  Company Number: 2008S1000017

PATIENT

DRUGS (1)
  1. CUBICIN [Suspect]

REACTIONS (2)
  - ENTEROCOCCAL BACTERAEMIA [None]
  - PATHOGEN RESISTANCE [None]
